FAERS Safety Report 8297950-5 (Version None)
Quarter: 2012Q2

REPORT INFORMATION
  Report Type: 
  Country: None (occurrence: None)
  Receive Date: 20120419
  Receipt Date: 20120416
  Transmission Date: 20120825
  Serious: Yes (Death)
  Sender: FDA-Public Use
  Company Number: AU-B.I. PHARMACEUTICALS,INC./RIDGEFIELD-2012-AU-00689AU

PATIENT
  Sex: Female

DRUGS (6)
  1. PRADAXA [Suspect]
     Indication: CEREBROVASCULAR ACCIDENT PROPHYLAXIS
     Dosage: 300 MG
     Dates: start: 20110920
  2. METOPROLOL TARTRATE [Concomitant]
  3. ARAVA [Concomitant]
  4. PRADAXA [Suspect]
     Indication: ATRIAL FIBRILLATION
  5. NEXIUM [Concomitant]
  6. ASPIRIN [Concomitant]

REACTIONS (1)
  - ACUTE MYOCARDIAL INFARCTION [None]
